FAERS Safety Report 13493628 (Version 1)
Quarter: 2017Q2

REPORT INFORMATION
  Report Type: Spontaneous
  Country: US (occurrence: US)
  Receive Date: 20170427
  Receipt Date: 20170427
  Transmission Date: 20170830
  Serious: No
  Sender: FDA-Public Use
  Company Number: US-ROCHE-1321040

PATIENT
  Sex: Male

DRUGS (2)
  1. ERIVEDGE [Suspect]
     Active Substance: VISMODEGIB
     Indication: BASAL CELL CARCINOMA
     Route: 048
     Dates: start: 20130912, end: 201312
  2. ASA [Concomitant]
     Active Substance: ASPIRIN
     Indication: ANTIPLATELET THERAPY
     Route: 048

REACTIONS (8)
  - Weight decreased [Unknown]
  - Muscle spasms [Unknown]
  - Constipation [Unknown]
  - Decreased appetite [Unknown]
  - Muscle spasms [Not Recovered/Not Resolved]
  - Alopecia [Unknown]
  - Ageusia [Unknown]
  - Nausea [Unknown]
